FAERS Safety Report 10925483 (Version 1)
Quarter: 2015Q1

REPORT INFORMATION
  Report Type: Spontaneous
  Country: US (occurrence: None)
  Receive Date: 20150129
  Receipt Date: 20150129
  Transmission Date: 20150721
  Serious: Yes (Hospitalization)
  Sender: FDA-Public Use
  Company Number: 122755

PATIENT
  Age: 33 Year
  Sex: Female

DRUGS (6)
  1. DIPHENHYDRAMINE [Concomitant]
     Active Substance: DIPHENHYDRAMINE
  2. LEVETIRACTAM [Suspect]
     Active Substance: LEVETIRACETAM
     Indication: SEIZURE
  3. METHADONE [Concomitant]
     Active Substance: METHADONE HYDROCHLORIDE
  4. PHENYTOIN. [Concomitant]
     Active Substance: PHENYTOIN
  5. HALOPERIDOL. [Concomitant]
     Active Substance: HALOPERIDOL
  6. LORAZEPAM. [Concomitant]
     Active Substance: LORAZEPAM

REACTIONS (3)
  - Psychotic disorder [None]
  - Exposure during pregnancy [None]
  - Treatment noncompliance [None]
